FAERS Safety Report 19923944 (Version 1)
Quarter: 2021Q4

REPORT INFORMATION
  Report Type: Spontaneous
  Country: US (occurrence: US)
  Receive Date: 20211006
  Receipt Date: 20211006
  Transmission Date: 20220303
  Serious: No
  Sender: FDA-Public Use
  Company Number: US-PFIZER INC-2021469794

PATIENT
  Age: 40 Year
  Sex: Female
  Weight: 74.83 kg

DRUGS (1)
  1. IBRANCE [Suspect]
     Active Substance: PALBOCICLIB
     Indication: Metastases to lung
     Dosage: 125 MG, CYCLIC (DAILY 21 DAYS)
     Route: 048
     Dates: start: 20210402

REACTIONS (4)
  - Platelet count decreased [Unknown]
  - Neutrophil count decreased [Unknown]
  - Fatigue [Unknown]
  - Dyspepsia [Unknown]
